FAERS Safety Report 10299378 (Version 1)
Quarter: 2014Q3

REPORT INFORMATION
  Report Type: Spontaneous
  Country: JP (occurrence: JP)
  Receive Date: 20140711
  Receipt Date: 20140711
  Transmission Date: 20150326
  Serious: Yes (Hospitalization)
  Sender: FDA-Public Use
  Company Number: PHHY2014JP084780

PATIENT
  Age: 84 Year
  Sex: Male

DRUGS (10)
  1. PREDNISOLONE. [Suspect]
     Active Substance: PREDNISOLONE
     Indication: STILL^S DISEASE ADULT ONSET
     Dosage: 20 MG, UNK
     Dates: start: 201105
  2. METHYLPREDNISOLONE [Concomitant]
     Active Substance: METHYLPREDNISOLONE
     Indication: STILL^S DISEASE ADULT ONSET
     Dosage: 125 MG, UNK
  3. PREDNISOLONE. [Suspect]
     Active Substance: PREDNISOLONE
     Dosage: 30 MG, UNK
  4. PREDNISOLONE. [Suspect]
     Active Substance: PREDNISOLONE
     Dosage: 15 MG, UNK
     Dates: start: 201106
  5. INSULIN [Concomitant]
     Active Substance: INSULIN NOS
     Indication: HYPERGLYCAEMIA
  6. PREDNISOLONE. [Suspect]
     Active Substance: PREDNISOLONE
     Dosage: 15 MG, UNK
  7. ETANERCEPT [Concomitant]
     Active Substance: ETANERCEPT
     Indication: STILL^S DISEASE ADULT ONSET
     Dosage: 50 MG, QW
  8. CICLOSPORIN [Concomitant]
     Active Substance: CYCLOSPORINE
     Indication: STILL^S DISEASE ADULT ONSET
     Dosage: 100 MG, UNK
  9. METHOTREXATE [Concomitant]
     Active Substance: METHOTREXATE
     Indication: STILL^S DISEASE ADULT ONSET
     Dates: start: 201201
  10. PREDNISOLONE. [Suspect]
     Active Substance: PREDNISOLONE
     Dosage: 9 MG, UNK

REACTIONS (10)
  - Hyperglycaemia [Recovered/Resolved]
  - Still^s disease adult onset [Recovered/Resolved]
  - Diabetes mellitus [Recovering/Resolving]
  - Arthralgia [Recovered/Resolved]
  - Disease recurrence [Recovered/Resolved]
  - Pyrexia [Recovered/Resolved]
  - Myopathy [Recovered/Resolved]
  - Hypogammaglobulinaemia [Recovered/Resolved]
  - Glucose tolerance impaired [Recovered/Resolved]
  - Condition aggravated [Recovered/Resolved]

NARRATIVE: CASE EVENT DATE: 201108
